FAERS Safety Report 10050698 (Version 1)
Quarter: 2014Q2

REPORT INFORMATION
  Report Type: Spontaneous
  Country: US (occurrence: US)
  Receive Date: 20140401
  Receipt Date: 20140401
  Transmission Date: 20141212
  Serious: No
  Sender: FDA-Public Use
  Company Number: US-ASTRAZENECA-2013SE71209

PATIENT
  Age: 51 Year
  Sex: Female

DRUGS (2)
  1. NEXIUM [Suspect]
     Route: 048
     Dates: start: 20121120
  2. FLUTICASONE NASAL SPRAY [Concomitant]
     Dosage: 2 SPRAYS
     Route: 045

REACTIONS (2)
  - Dyspepsia [Unknown]
  - Drug ineffective [Unknown]
